FAERS Safety Report 5906148-4 (Version None)
Quarter: 2008Q4

REPORT INFORMATION
  Report Type: 
  Country: None (occurrence: None)
  Receive Date: 20081002
  Receipt Date: 20080929
  Transmission Date: 20090506
  Serious: Yes (Life-Threatening)
  Sender: FDA-Public Use
  Company Number: PHHY2008AU22884

PATIENT

DRUGS (1)
  1. GLEEVEC [Suspect]
     Dosage: 600 MG, QD
     Route: 048

REACTIONS (3)
  - DISSEMINATED INTRAVASCULAR COAGULATION [None]
  - MENINGOCOCCAL SEPSIS [None]
  - MULTI-ORGAN FAILURE [None]
